FAERS Safety Report 26039806 (Version 1)
Quarter: 2025Q4

REPORT INFORMATION
  Report Type: Spontaneous
  Country: US (occurrence: US)
  Receive Date: 20251113
  Receipt Date: 20251113
  Transmission Date: 20260118
  Serious: Yes (Hospitalization, Other)
  Sender: ALEXION PHARMACEUTICALS
  Company Number: US-ASTRAZENECA-202511NAM008354US

PATIENT
  Sex: Female

DRUGS (6)
  1. TEZSPIRE [Suspect]
     Active Substance: TEZEPELUMAB-EKKO
     Route: 065
  2. TEZSPIRE [Suspect]
     Active Substance: TEZEPELUMAB-EKKO
  3. PROLIA [Suspect]
     Active Substance: DENOSUMAB
     Dosage: 60 MILLIGRAM
     Route: 065
  4. TESSALON [Concomitant]
     Active Substance: BENZONATATE
     Route: 065
  5. ALBUTEROL [Concomitant]
     Active Substance: ALBUTEROL
     Route: 065
  6. MUCINEX [Concomitant]
     Active Substance: GUAIFENESIN
     Route: 065

REACTIONS (12)
  - Pancreatitis [Recovered/Resolved]
  - Pneumonia [Recovered/Resolved]
  - Nephrolithiasis [Recovered/Resolved]
  - Sputum discoloured [Not Recovered/Not Resolved]
  - Rhinorrhoea [Not Recovered/Not Resolved]
  - Nasopharyngitis [Recovered/Resolved]
  - Chest discomfort [Unknown]
  - Chest pain [Unknown]
  - Allergic cough [Unknown]
  - Dysphonia [Unknown]
  - Asthma [Unknown]
  - Sinusitis [Unknown]
